FAERS Safety Report 7586425-4 (Version None)
Quarter: 2011Q3

REPORT INFORMATION
  Report Type: 
  Country: None (occurrence: None)
  Receive Date: 20110701
  Receipt Date: 20110622
  Transmission Date: 20111222
  Serious: Yes (Other)
  Sender: FDA-Public Use
  Company Number: B0718780A

PATIENT
  Sex: Female

DRUGS (5)
  1. LAMICTAL [Concomitant]
     Dates: start: 20090101
  2. TOPAMAX [Concomitant]
     Dosage: 100MG TWICE PER DAY
  3. LAMICTAL [Suspect]
     Dosage: 100MG TWICE PER DAY
     Route: 065
     Dates: start: 20110501
  4. KEPPRA [Concomitant]
     Dosage: 1500MG TWICE PER DAY
  5. UNSPECIFIED DRUGS [Concomitant]

REACTIONS (7)
  - PETIT MAL EPILEPSY [None]
  - SPEECH DISORDER [None]
  - NAUSEA [None]
  - PRODUCT SUBSTITUTION ISSUE [None]
  - DYSARTHRIA [None]
  - DRUG INEFFECTIVE [None]
  - SOMNOLENCE [None]
